FAERS Safety Report 6078564-4 (Version None)
Quarter: 2009Q1

REPORT INFORMATION
  Report Type: 
  Country: None (occurrence: None)
  Receive Date: 20090212
  Receipt Date: 20090127
  Transmission Date: 20090719
  Serious: Yes (Other)
  Sender: FDA-Public Use
  Company Number: 2008AP003283

PATIENT
  Age: 68 Year
  Sex: Female

DRUGS (3)
  1. CITALOPRAM HYDROBROMIDE [Suspect]
     Indication: DEPRESSION
     Dosage: 40 MG;QD PO
     Route: 048
     Dates: start: 20080115
  2. ROSUVASTATIN CALCIUM [Concomitant]
  3. RISEDRONATE SODIUM [Concomitant]

REACTIONS (2)
  - OPTIC NERVE DISORDER [None]
  - VITH NERVE PARALYSIS [None]
